FAERS Safety Report 7822281-4 (Version None)
Quarter: 2011Q4

REPORT INFORMATION
  Report Type: 
  Country: None (occurrence: None)
  Receive Date: 20111018
  Receipt Date: 20110119
  Transmission Date: 20120403
  Serious: No
  Sender: FDA-Public Use
  Company Number: US-ASTRAZENECA-2011SE03252

PATIENT
  Age: 9 Year
  Sex: Male

DRUGS (2)
  1. PROAIR HFA [Concomitant]
  2. SYMBICORT [Suspect]
     Indication: INTERSTITIAL LUNG DISEASE
     Dosage: 80/4.5    1 PUFF TWICE A DAY
     Route: 055
     Dates: start: 20101101, end: 20101217

REACTIONS (4)
  - PARANOIA [None]
  - HALLUCINATION [None]
  - VIOLENCE-RELATED SYMPTOM [None]
  - ABNORMAL BEHAVIOUR [None]
